FAERS Safety Report 8645108 (Version 3)
Quarter: 2012Q4

REPORT INFORMATION
  Report Type: 
  Country: CA (occurrence: CA)
  Receive Date: 20120702
  Receipt Date: 20121008
  Transmission Date: 20130627
  Serious: Yes (Other)
  Sender: FDA-Public Use
  Company Number: PHHY2012CA042446

PATIENT
  Age: 58 Year
  Sex: Female

DRUGS (2)
  1. ACLASTA [Suspect]
     Indication: OSTEOPOROSIS
     Dosage: UNK
     Route: 042
     Dates: start: 20100309
  2. ACLASTA [Suspect]
     Dosage: UNK
     Route: 042
     Dates: start: 20110627

REACTIONS (3)
  - Rheumatoid arthritis [Recovered/Resolved]
  - Arthritis [Recovered/Resolved]
  - Adrenocortical insufficiency acute [Recovered/Resolved]
